FAERS Safety Report 8300464-7 (Version None)
Quarter: 2012Q2

REPORT INFORMATION
  Report Type: 
  Country: None (occurrence: None)
  Receive Date: 20120417
  Receipt Date: 20120404
  Transmission Date: 20120825
  Serious: Yes (Life-Threatening, Hospitalization, Disabling)
  Sender: FDA-Public Use
  Company Number: 2012CP000036

PATIENT
  Age: 47 Year
  Sex: Male

DRUGS (1)
  1. OFIRMEV [Suspect]
     Indication: PAIN
     Dosage: ;IV
     Route: 042
     Dates: start: 20120330

REACTIONS (2)
  - CARDIAC ARREST [None]
  - BRAIN DEATH [None]
